FAERS Safety Report 9303523 (Version 1)
Quarter: 2013Q2

REPORT INFORMATION
  Report Type: Spontaneous
  Country: US (occurrence: US)
  Receive Date: 20130522
  Receipt Date: 20130522
  Transmission Date: 20140414
  Serious: Yes (Other)
  Sender: FDA-Public Use
  Company Number: US-PFIZER INC-2013149917

PATIENT
  Age: 52 Year
  Sex: Female
  Weight: 90.7 kg

DRUGS (6)
  1. LIPITOR [Suspect]
     Indication: BLOOD CHOLESTEROL INCREASED
     Dosage: UNK
  2. SYNTHROID [Suspect]
     Indication: THYROID DISORDER
     Dosage: 50 UG, 2X/DAY
  3. SYNTHROID [Suspect]
     Dosage: 75 UG, UNK
  4. ARTHROTEC [Concomitant]
     Indication: ARTHRITIS
     Dosage: 50/200 MG/MCG, 1X/DAY
  5. NORVASC [Concomitant]
     Indication: HYPERTENSION
     Dosage: 10 MG, UNK
  6. ASPIRIN [Concomitant]
     Dosage: UNK

REACTIONS (3)
  - Urinary tract infection [Unknown]
  - Pruritus [Unknown]
  - Rash [Unknown]
